FAERS Safety Report 13763916 (Version 1)
Quarter: 2017Q3

REPORT INFORMATION
  Report Type: Spontaneous
  Country: BR (occurrence: BR)
  Receive Date: 20170718
  Receipt Date: 20170718
  Transmission Date: 20171127
  Serious: Yes (Hospitalization)
  Sender: FDA-Public Use
  Company Number: BR-LPDUSPRD-20171004

PATIENT
  Sex: Female

DRUGS (4)
  1. MALTOFER FOL [Concomitant]
     Active Substance: FOLIC ACID\IRON POLYMALTOSE
     Dosage: 2 DOSAGE FORMS
     Route: 064
     Dates: start: 201609, end: 20170518
  2. OMEGAMETER [Concomitant]
     Dosage: UNKNOWN
     Route: 064
  3. FERINJECT [Suspect]
     Active Substance: FERRIC CARBOXYMALTOSE
     Dosage: 2 AMPULES
     Route: 064
  4. ERGOCALCIFEROL. [Concomitant]
     Active Substance: ERGOCALCIFEROL
     Route: 064

REACTIONS (3)
  - Underweight [Unknown]
  - Anaemia neonatal [Unknown]
  - Foetal exposure during pregnancy [Unknown]

NARRATIVE: CASE EVENT DATE: 2017
